FAERS Safety Report 5128975-6 (Version None)
Quarter: 2006Q4

REPORT INFORMATION
  Report Type: 
  Country: None (occurrence: None)
  Receive Date: 20061016
  Receipt Date: 20061016
  Transmission Date: 20070319
  Serious: Yes (Life-Threatening)
  Sender: FDA-Public Use
  Company Number: None

PATIENT
  Sex: Female
  Weight: 62.1428 kg

DRUGS (5)
  1. ENBREL [Suspect]
     Indication: RHEUMATOID ARTHRITIS
     Dosage: 25MG BIW SQ
     Route: 058
     Dates: start: 20010101, end: 20060801
  2. CELEBREX [Concomitant]
  3. SYNTHROID [Concomitant]
  4. CENTRUM SILVER [Concomitant]
  5. CALCIUM CITRATE [Concomitant]

REACTIONS (1)
  - CHRONIC LYMPHOCYTIC LEUKAEMIA [None]
